FAERS Safety Report 13334582 (Version 1)
Quarter: 2017Q1

REPORT INFORMATION
  Report Type: Spontaneous
  Country: IT (occurrence: IT)
  Receive Date: 20170314
  Receipt Date: 20170314
  Transmission Date: 20170428
  Serious: Yes (Other)
  Sender: FDA-Public Use
  Company Number: IT-PFIZER INC-3234229

PATIENT
  Age: 36 Year
  Sex: Male
  Weight: 100 kg

DRUGS (11)
  1. FENTANEST /00174601/ [Suspect]
     Active Substance: FENTANYL CITRATE
     Indication: GENERAL ANAESTHESIA
     Dosage: 200 UG, FREQ: TOTAL
     Route: 042
     Dates: start: 20160318, end: 20160318
  2. BENTELAN [Concomitant]
     Active Substance: BETAMETHASONE SODIUM PHOSPHATE
     Indication: PAIN
     Dosage: 4 MG, UNK
     Route: 042
  3. CONTRAMAL [Concomitant]
     Active Substance: TRAMADOL HYDROCHLORIDE
     Indication: PAIN
     Route: 042
  4. ZANTAC [Concomitant]
     Active Substance: RANITIDINE HYDROCHLORIDE
     Indication: PAIN
     Dosage: 50 MG, UNK
     Route: 042
  5. CEPHAZOLIN [Concomitant]
     Active Substance: CEFAZOLIN
     Indication: ANTIBIOTIC PROPHYLAXIS
     Dosage: 2 G, UNK
     Route: 042
     Dates: start: 20160318, end: 20160318
  6. PLASIL /00041901/ [Concomitant]
     Active Substance: METOCLOPRAMIDE
     Indication: PAIN
     Dosage: 10 MG, UNK
     Route: 042
  7. TORA-DOL [Concomitant]
     Active Substance: KETOROLAC TROMETHAMINE
     Indication: PAIN
     Dosage: 90 MG, UNK
     Route: 042
  8. ROCURONIUM BROMIDE. [Suspect]
     Active Substance: ROCURONIUM BROMIDE
     Indication: GENERAL ANAESTHESIA
     Dosage: 80 MG, FREQ: TOTAL
     Route: 042
     Dates: start: 20160318, end: 20160318
  9. CATAPRESAN /00171101/ [Concomitant]
     Active Substance: CLONIDINE
     Indication: PAIN
     Dosage: 75 MG, UNK
     Route: 042
  10. MIDAZOLAM [Concomitant]
     Active Substance: MIDAZOLAM HYDROCHLORIDE
     Indication: PAIN
     Dosage: 2.5 MG, UNK
     Route: 042
  11. PROPOFOL B.BRAUN [Suspect]
     Active Substance: PROPOFOL
     Indication: GENERAL ANAESTHESIA
     Dosage: 2.5 UG, FREQ: TOTAL
     Route: 042
     Dates: start: 20160318, end: 20160318

REACTIONS (2)
  - Hyperhidrosis [Recovered/Resolved with Sequelae]
  - Atrial fibrillation [Recovered/Resolved with Sequelae]

NARRATIVE: CASE EVENT DATE: 20160318
